FAERS Safety Report 4366964-X (Version None)
Quarter: 2004Q2

REPORT INFORMATION
  Report Type: 
  Country: None (occurrence: None)
  Receive Date: 20040524
  Receipt Date: 20040511
  Transmission Date: 20050107
  Serious: Yes (Death, Life-Threatening, Hospitalization, Disabling, Other)
  Sender: FDA-Public Use
  Company Number: 001-0981-M0001130

PATIENT
  Age: 46 Year
  Sex: Male
  Weight: 79.1 kg

DRUGS (21)
  1. ATORVASTATIN (ATORVASTATIN) [Suspect]
     Indication: PROPHYLAXIS
     Dosage: 10 MG (DAILY), ORAL
     Route: 048
     Dates: start: 19971121, end: 20040219
  2. METFORMIN HCL [Concomitant]
  3. LOPERAMIDE HYDROCHLORIDE [Concomitant]
  4. GLIPIZIDE [Concomitant]
  5. ASCORIBIC ACID (ASCORBIC ACID) [Concomitant]
  6. MULTIVITAMINS (ERGOCALCIFEROL, ASCORBIC ACID, FOLIC ACID, THIAMINE HYD [Concomitant]
  7. METHYLPREDNISOLONE [Concomitant]
  8. EPOETIN ALFA (EPOETIN ALFA) [Concomitant]
  9. ALL OTHER THERAPEUTIC PRODUCTS (ALL OTHER THERAPEUTIC PRODUCTS) [Concomitant]
  10. FERROUS SULFATE TAB [Concomitant]
  11. CLONIDINE [Concomitant]
  12. BACTRIM [Concomitant]
  13. SIROLIMUS (SIROLIMUS) [Concomitant]
  14. SODIUM BICARBONATE (SODIUM BICARBOANTE) [Concomitant]
  15. LANSOPRAZOLE (LANOPRAZOLE) [Concomitant]
  16. INSULIN [Concomitant]
  17. DILTIAZEM [Concomitant]
  18. MAALOX (MAGNESIUM HYDROXIDE, ALUMINIUM HYDROXIDE GEL) [Concomitant]
  19. SUCRALFATE [Concomitant]
  20. ISOPHANE INSULIN [Concomitant]
  21. TACROLIMUS (TACROLIMUS) [Concomitant]

REACTIONS (36)
  - ANOREXIA [None]
  - CATARACT [None]
  - CRACKLES LUNG [None]
  - CRYING [None]
  - CULTURE URINE POSITIVE [None]
  - DEHYDRATION [None]
  - DIABETES MELLITUS INADEQUATE CONTROL [None]
  - DIALYSIS [None]
  - DIARRHOEA [None]
  - DISCOMFORT [None]
  - EYE HAEMORRHAGE [None]
  - HAEMATOCRIT DECREASED [None]
  - HAEMOGLOBIN DECREASED [None]
  - HEPATITIS A [None]
  - HEPATITIS FULMINANT [None]
  - HEPATORENAL SYNDROME [None]
  - HYPERGLYCAEMIA [None]
  - HYPERTENSION [None]
  - INTRA-ABDOMINAL HAEMORRHAGE [None]
  - LIVER TRANSPLANT [None]
  - LIVER TRANSPLANT REJECTION [None]
  - LOCALISED OSTEOARTHRITIS [None]
  - MALNUTRITION [None]
  - OEDEMA PERIPHERAL [None]
  - PAIN [None]
  - PAROTID GLAND ENLARGEMENT [None]
  - PITTING OEDEMA [None]
  - POST PROCEDURAL BILE LEAK [None]
  - POST PROCEDURAL HAEMORRHAGE [None]
  - PYELONEPHRITIS [None]
  - RENAL CORTICAL NECROSIS [None]
  - RENAL FAILURE ACUTE [None]
  - RENAL TRANSPLANT [None]
  - STAPHYLOCOCCAL INFECTION [None]
  - TREATMENT NONCOMPLIANCE [None]
  - WEIGHT DECREASED [None]
